FAERS Safety Report 20771993 (Version 4)
Quarter: 2022Q2

REPORT INFORMATION
  Report Type: Spontaneous
  Country: US (occurrence: US)
  Receive Date: 20220501
  Receipt Date: 20220615
  Transmission Date: 20220721
  Serious: Yes (Life-Threatening, Disabling, Other)
  Sender: FDA-Public Use
  Company Number: US-CHIESI-2022CHF01963

PATIENT
  Sex: Male

DRUGS (3)
  1. CUROSURF [Suspect]
     Active Substance: PORACTANT ALFA
     Indication: Neonatal respiratory distress syndrome
     Dosage: 6.6 MILLILITER, (1X)
     Route: 007
     Dates: start: 20220411, end: 20220411
  2. ERYTHROMYCIN [Concomitant]
     Active Substance: ERYTHROMYCIN
     Indication: Product used for unknown indication
     Dosage: UNK
  3. VITAMIN K [Concomitant]
     Active Substance: PHYTONADIONE
     Indication: Product used for unknown indication
     Dosage: UNK

REACTIONS (8)
  - Obstructive airways disorder [Not Recovered/Not Resolved]
  - Endotracheal intubation complication [Recovered/Resolved]
  - Nervous system disorder [Not Recovered/Not Resolved]
  - Ill-defined disorder [Not Recovered/Not Resolved]
  - Endotracheal intubation complication [Recovered/Resolved]
  - Liquid product physical issue [Recovered/Resolved]
  - Increased bronchial secretion [Unknown]
  - Off label use [Recovered/Resolved]

NARRATIVE: CASE EVENT DATE: 20220411
